FAERS Safety Report 4721217-2 (Version None)
Quarter: 2005Q3

REPORT INFORMATION
  Report Type: 
  Country: None (occurrence: None)
  Receive Date: 20050722
  Receipt Date: 20050711
  Transmission Date: 20060218
  Serious: Yes (Other)
  Sender: FDA-Public Use
  Company Number: US-KINGPHARMUSA00001-K200500936

PATIENT
  Age: 38 Year
  Sex: Female
  Weight: 69 kg

DRUGS (2)
  1. EPIPEN [Suspect]
     Dosage: .3 MG, SINGLE
     Dates: start: 20050620, end: 20050620
  2. MULTIVITAMIN ^LAPPE^ [Concomitant]

REACTIONS (9)
  - ACCIDENTAL EXPOSURE [None]
  - HYPOAESTHESIA [None]
  - NAUSEA [None]
  - OEDEMA PERIPHERAL [None]
  - PAIN [None]
  - PALPITATIONS [None]
  - PARAESTHESIA [None]
  - SKELETAL INJURY [None]
  - TREMOR [None]
